FAERS Safety Report 6632989-4 (Version None)
Quarter: 2010Q1

REPORT INFORMATION
  Report Type: 
  Country: None (occurrence: None)
  Receive Date: 20100312
  Receipt Date: 20100305
  Transmission Date: 20100710
  Serious: Yes (Other)
  Sender: FDA-Public Use
  Company Number: A0849572A

PATIENT
  Age: 81 Year
  Sex: Female

DRUGS (13)
  1. ARZERRA [Suspect]
     Dosage: 2000MG UNKNOWN
     Route: 042
     Dates: start: 20100210
  2. RITUXIMAB [Suspect]
     Route: 065
  3. SINGULAIR [Concomitant]
  4. ALLOPURINOL [Concomitant]
  5. FUROSEMIDE [Concomitant]
  6. POTASSIUM CHLORIDE [Concomitant]
  7. ATROVENT [Concomitant]
  8. COZAAR [Concomitant]
  9. FAMOTIDINE [Concomitant]
  10. TYLENOL W/ CODEINE [Concomitant]
  11. SUDAFED 12 HOUR [Concomitant]
  12. TRENTAL [Concomitant]
  13. ASPIRIN [Concomitant]

REACTIONS (4)
  - BLOOD ALKALINE PHOSPHATASE INCREASED [None]
  - BLOOD BILIRUBIN INCREASED [None]
  - CARDIO-RESPIRATORY ARREST [None]
  - LIVER FUNCTION TEST ABNORMAL [None]
